FAERS Safety Report 5706227-0 (Version None)
Quarter: 2008Q2

REPORT INFORMATION
  Report Type: 
  Country: None (occurrence: None)
  Receive Date: 20080415
  Receipt Date: 20080320
  Transmission Date: 20081010
  Serious: No
  Sender: FDA-Public Use
  Company Number: US-BOEHRINGER INGELHEIM GMBH, GERMANY-2008-BP-04455BP

PATIENT
  Sex: Male

DRUGS (5)
  1. FLOMAX [Suspect]
     Indication: BENIGN PROSTATIC HYPERPLASIA
     Route: 048
     Dates: start: 20080317
  2. ATENOLOL [Concomitant]
     Indication: HYPERTENSION
  3. BENATOPRIL [Concomitant]
     Indication: HYPERTENSION
  4. LOTENSIN [Concomitant]
  5. LIPITOR [Concomitant]

REACTIONS (2)
  - EJACULATION FAILURE [None]
  - THERAPEUTIC RESPONSE UNEXPECTED [None]
